FAERS Safety Report 24389442 (Version 1)
Quarter: 2024Q4

REPORT INFORMATION
  Report Type: Spontaneous
  Country: FR (occurrence: FR)
  Receive Date: 20241003
  Receipt Date: 20241003
  Transmission Date: 20250114
  Serious: Yes (Other)
  Sender: ROCHE
  Company Number: FR-ROCHE-10000092768

PATIENT
  Age: 69 Year
  Sex: Female

DRUGS (1)
  1. VABYSMO [Suspect]
     Active Substance: FARICIMAB-SVOA
     Indication: Neovascular age-related macular degeneration
     Dosage: DATE OF LAST FARICIMAB INJECTION ON: 14-08-2024 (6TH IVT OF VABYSMO)  SN1000113818159 LOT B1531B07 E
     Route: 050
     Dates: start: 20240207, end: 20240925

REACTIONS (3)
  - Iridocyclitis [Unknown]
  - Vitritis [Unknown]
  - Ocular hypertension [Unknown]

NARRATIVE: CASE EVENT DATE: 20240817
